FAERS Safety Report 9351424 (Version 1)
Quarter: 2013Q2

REPORT INFORMATION
  Report Type: Spontaneous
  Country: US (occurrence: US)
  Receive Date: 20130617
  Receipt Date: 20130617
  Transmission Date: 20140414
  Serious: No
  Sender: FDA-Public Use
  Company Number: US-UPSHER-SMITH LABORATORIES, INC.-13001834

PATIENT
  Age: 59 Year
  Sex: Female

DRUGS (6)
  1. DIVIGEL [Suspect]
     Indication: HOT FLUSH
     Dosage: 1 MG, QD
     Route: 061
     Dates: start: 201305, end: 201305
  2. COLLAGEN [Concomitant]
     Dosage: UNK
  3. FISH OIL [Concomitant]
     Dosage: UNK
  4. VINEGAR TABLETS [Concomitant]
     Dosage: UNK
  5. CITRULLINE [Concomitant]
     Dosage: UNK
  6. VALACICLOVIR [Concomitant]
     Dosage: UNK

REACTIONS (4)
  - Hypoaesthesia [Not Recovered/Not Resolved]
  - Muscle spasms [Recovering/Resolving]
  - Hypertension [Recovered/Resolved]
  - Muscular weakness [Not Recovered/Not Resolved]
